FAERS Safety Report 5917115-9 (Version None)
Quarter: 2008Q4

REPORT INFORMATION
  Report Type: 
  Country: None (occurrence: None)
  Receive Date: 20081014
  Receipt Date: 20081007
  Transmission Date: 20090506
  Serious: Yes (Hospitalization)
  Sender: FDA-Public Use
  Company Number: US-ELI_LILLY_AND_COMPANY-US200810001669

PATIENT
  Age: 42 Year
  Sex: Female

DRUGS (3)
  1. ALIMTA [Suspect]
     Indication: LUNG ADENOCARCINOMA STAGE IV
     Dosage: 500 MG/M2, UNK
  2. VITAMIN B-12 [Concomitant]
     Dosage: UNK, BEFORE INITIATION OF PEMETREXED
  3. FOLIC ACID [Concomitant]
     Dosage: 1 MG, UNK
     Route: 048

REACTIONS (4)
  - ALANINE AMINOTRANSFERASE INCREASED [None]
  - CAECITIS [None]
  - FEBRILE NEUTROPENIA [None]
  - SINUS TACHYCARDIA [None]
